FAERS Safety Report 7861777-6 (Version None)
Quarter: 2011Q4

REPORT INFORMATION
  Report Type: 
  Country: None (occurrence: None)
  Receive Date: 20111027
  Receipt Date: 20101115
  Transmission Date: 20120403
  Serious: No
  Sender: FDA-Public Use
  Company Number: US-AMGEN-USASP2010005192

PATIENT
  Age: 17 Year
  Sex: Male

DRUGS (1)
  1. ENBREL [Suspect]
     Indication: RHEUMATOID ARTHRITIS
     Dosage: 50 MG, QWK
     Dates: start: 20100201

REACTIONS (5)
  - OROPHARYNGEAL PAIN [None]
  - ORAL MUCOSAL DISCOLOURATION [None]
  - PYREXIA [None]
  - OROPHARYNGEAL PLAQUE [None]
  - COUGH [None]
